FAERS Safety Report 4295417-2 (Version None)
Quarter: 2004Q1

REPORT INFORMATION
  Report Type: 
  Country: None (occurrence: None)
  Receive Date: 20040211
  Receipt Date: 20040128
  Transmission Date: 20041129
  Serious: Yes (Other)
  Sender: FDA-Public Use
  Company Number: 2004-DE-00419GD

PATIENT

DRUGS (4)
  1. NEVIRAPINE [Suspect]
     Indication: HIV INFECTION
  2. INDINAVIR (INDIVAVIR) (NR) [Suspect]
     Indication: HIV INFECTION
     Dosage: 800 MG
  3. RITONAVIR (RITONAVIR) [Suspect]
     Indication: HIV INFECTION
     Dosage: 400 MG
  4. ABACAVIR (ABACAVIR) [Suspect]

REACTIONS (2)
  - DRUG INEFFECTIVE [None]
  - HEPATOTOXICITY [None]
